FAERS Safety Report 8488428-4 (Version None)
Quarter: 2012Q2

REPORT INFORMATION
  Report Type: 
  Country: None (occurrence: None)
  Receive Date: 20120626
  Receipt Date: 20120612
  Transmission Date: 20120825
  Serious: Yes (Death)
  Sender: FDA-Public Use
  Company Number: CIP-2012-00185

PATIENT

DRUGS (2)
  1. CETUXIMAB (CETUXIMAB) [Suspect]
     Indication: COLORECTAL CANCER
     Dosage: SEE IMAGE
  2. IRINOTECAN HCL [Suspect]
     Indication: COLORECTAL CANCER
     Dosage: SEE IMAGE
     Route: 042

REACTIONS (2)
  - ACUTE RESPIRATORY DISTRESS SYNDROME [None]
  - INTESTINAL PERFORATION [None]
